FAERS Safety Report 6412509-X (Version None)
Quarter: 2009Q4

REPORT INFORMATION
  Report Type: 
  Country: None (occurrence: None)
  Receive Date: 20091023
  Receipt Date: 20090429
  Transmission Date: 20100525
  Serious: No
  Sender: FDA-Public Use
  Company Number: US-BRISTOL-MYERS SQUIBB COMPANY-14596639

PATIENT
  Age: 20 Year
  Sex: Female

DRUGS (1)
  1. KENALOG-40 [Suspect]
     Indication: DERMATITIS ATOPIC
     Dosage: 40MG,18NOV04
     Route: 030
     Dates: start: 20041111

REACTIONS (1)
  - INJECTION SITE REACTION [None]
